FAERS Safety Report 4449836-1 (Version None)
Quarter: 2004Q3

REPORT INFORMATION
  Report Type: 
  Country: None (occurrence: None)
  Receive Date: 20040915
  Receipt Date: 20040909
  Transmission Date: 20050211
  Serious: Yes (Death)
  Sender: FDA-Public Use
  Company Number: MY-MERCK-0409MYS00009

PATIENT

DRUGS (1)
  1. CANCIDAS [Suspect]
     Indication: PNEUMONIA ASPERGILLUS
     Route: 042
     Dates: start: 20040908, end: 20040908

REACTIONS (1)
  - DEATH [None]
